FAERS Safety Report 8425710-0 (Version None)
Quarter: 2012Q2

REPORT INFORMATION
  Report Type: 
  Country: None (occurrence: None)
  Receive Date: 20120611
  Receipt Date: 20120606
  Transmission Date: 20120825
  Serious: Yes (Hospitalization, Other)
  Sender: FDA-Public Use
  Company Number: PHHY2011AU116303

PATIENT
  Sex: Female

DRUGS (2)
  1. CODALGIN FORTE [Concomitant]
     Indication: PAIN
     Route: 048
     Dates: start: 20100722
  2. ZOLEDRONOC ACID [Suspect]
     Indication: OSTEOPOROSIS
     Dosage: 5 MG, UNK
     Route: 042
     Dates: start: 20100831

REACTIONS (1)
  - MALIGNANT PALATE NEOPLASM [None]
